FAERS Safety Report 8465616-4 (Version None)
Quarter: 2012Q2

REPORT INFORMATION
  Report Type: 
  Country: None (occurrence: None)
  Receive Date: 20120621
  Receipt Date: 20120621
  Transmission Date: 20120825
  Serious: Yes (Other)
  Sender: FDA-Public Use
  Company Number: None

PATIENT
  Sex: Female

DRUGS (2)
  1. GILENYA [Suspect]
     Indication: MULTIPLE SCLEROSIS
     Dosage: GILENYA 0.5 MG DAILY PO
     Route: 048
     Dates: start: 20120601
  2. GILENYA [Suspect]
     Indication: MULTIPLE SCLEROSIS
     Dosage: GILENYA 0.5 MG DAILY PO
     Route: 048
     Dates: start: 20120427

REACTIONS (1)
  - MALAISE [None]
